FAERS Safety Report 20286450 (Version 3)
Quarter: 2022Q4

REPORT INFORMATION
  Report Type: Spontaneous
  Country: CA (occurrence: CA)
  Receive Date: 20220103
  Receipt Date: 20221121
  Transmission Date: 20230113
  Serious: Yes (Life-Threatening, Hospitalization, Other)
  Sender: FDA-Public Use
  Company Number: CA-MLMSERVICE-2021122132808371

PATIENT
  Age: 61 Year
  Sex: Female

DRUGS (2)
  1. LETROZOLE [Interacting]
     Active Substance: LETROZOLE
     Indication: Breast cancer metastatic
     Dates: start: 201205
  2. PALBOCICLIB [Interacting]
     Active Substance: PALBOCICLIB
     Indication: Breast cancer metastatic
     Dates: start: 20200803, end: 20200824

REACTIONS (5)
  - Hepatic steatosis [Recovered/Resolved]
  - Drug interaction [Unknown]
  - Hepatocellular injury [Recovered/Resolved]
  - Drug-induced liver injury [Recovered/Resolved]
  - Hepatotoxicity [Recovered/Resolved]
